FAERS Safety Report 12192268 (Version 2)
Quarter: 2016Q2

REPORT INFORMATION
  Report Type: Report from Study
  Country: CA (occurrence: CA)
  Receive Date: 20160318
  Receipt Date: 20160513
  Transmission Date: 20160815
  Serious: Yes (Death, Hospitalization)
  Sender: FDA-Public Use
  Company Number: CA-AMGEN-CANNI2016034205

PATIENT
  Age: 76 Year
  Sex: Male

DRUGS (3)
  1. DEXAMETHASONE. [Concomitant]
     Active Substance: DEXAMETHASONE
     Dosage: 20 MG, DAYS 8, 15, 22
     Route: 048
     Dates: start: 20141202, end: 20160203
  2. POMALIDOMIDE [Suspect]
     Active Substance: POMALIDOMIDE
     Indication: PRODUCT USED FOR UNKNOWN INDICATION
     Dosage: 2 MG, QD
     Route: 048
     Dates: start: 20151109, end: 20160111
  3. CARFILZOMIB [Suspect]
     Active Substance: CARFILZOMIB
     Indication: PLASMA CELL MYELOMA
     Dosage: 39 MG, DAY 1, 2, 8, 9, 15 AND 16
     Route: 042
     Dates: start: 20151110

REACTIONS (6)
  - Pyrexia [Recovered/Resolved]
  - Respiratory rate increased [Recovered/Resolved]
  - Disease progression [Fatal]
  - Neuropathy peripheral [Unknown]
  - Heart rate increased [Recovered/Resolved]
  - Dyspnoea [Recovered/Resolved]

NARRATIVE: CASE EVENT DATE: 20151112
